FAERS Safety Report 21997873 (Version 5)
Quarter: 2023Q2

REPORT INFORMATION
  Report Type: Report from Study
  Country: US (occurrence: US)
  Receive Date: 20230216
  Receipt Date: 20230627
  Transmission Date: 20230722
  Serious: No
  Sender: FDA-Public Use
  Company Number: US-002147023-NVSC2023US035459

PATIENT
  Sex: Female

DRUGS (1)
  1. ENTRESTO [Suspect]
     Active Substance: SACUBITRIL\VALSARTAN
     Indication: Cardiac failure
     Dosage: 100 MG, BID, (49/51MG)
     Route: 048
     Dates: start: 20230119

REACTIONS (7)
  - Weight fluctuation [Unknown]
  - Arthritis [Unknown]
  - Asthenia [Recovering/Resolving]
  - Hypersensitivity [Unknown]
  - Cough [Unknown]
  - Hypotension [Recovered/Resolved]
  - Fatigue [Unknown]

NARRATIVE: CASE EVENT DATE: 20230101
